FAERS Safety Report 19264212 (Version 2)
Quarter: 2021Q2

REPORT INFORMATION
  Report Type: Report from Study
  Country: US (occurrence: US)
  Receive Date: 20210517
  Receipt Date: 20210609
  Transmission Date: 20210717
  Serious: Yes (Hospitalization)
  Sender: FDA-Public Use
  Company Number: US-ROCHE-2759475

PATIENT
  Age: 61 Year
  Sex: Female
  Weight: 79.1 kg

DRUGS (10)
  1. MIRALAX [Concomitant]
     Active Substance: POLYETHYLENE GLYCOL 3350
     Indication: CONSTIPATION
     Route: 048
     Dates: start: 20210208
  2. COBIMETINIB. [Suspect]
     Active Substance: COBIMETINIB
     Indication: OVARIAN CANCER RECURRENT
     Dosage: THREE 20 MG TABLET?ON 25/JAN/2021, MOST RECENT DOSE OF COBIMEINIB (60 MG) PRIOR TO AE (SEROUS RETINA
     Route: 048
     Dates: start: 20201230
  3. MAGNESIUM SULFATE. [Concomitant]
     Active Substance: MAGNESIUM SULFATE
     Indication: HYPOMAGNESAEMIA
     Dosage: SUBSEQUENTLY RECEIVED ON: 19/JAN/2021
     Route: 042
     Dates: start: 20210115, end: 20210115
  4. IMITREX [Concomitant]
     Active Substance: SUMATRIPTAN SUCCINATE
     Indication: HEADACHE
     Route: 048
     Dates: start: 20210205
  5. BENADRYL [Concomitant]
     Active Substance: DIPHENHYDRAMINE HYDROCHLORIDE
     Indication: DERMATITIS ACNEIFORM
     Dates: start: 20210109
  6. NIRAPARIB [Suspect]
     Active Substance: NIRAPARIB
     Indication: OVARIAN CANCER RECURRENT
     Dosage: TWO 100 MG CAPSULE?ON 25/JAN/2021, MOST RECENT DOSE OF NIRAPARIB (200 MG) PRIOR TO AE (SEROUS RETINA
     Route: 048
     Dates: start: 20201230
  7. NACL [Concomitant]
     Active Substance: SODIUM CHLORIDE
     Dosage: SUBSEQUENTLY RECEIVED ON: 25/JAN/2021
     Route: 042
     Dates: start: 20210115, end: 20210115
  8. MACROBID [Concomitant]
     Active Substance: NITROFURANTOIN\NITROFURANTOIN MONOHYDRATE
     Indication: URINARY TRACT INFECTION
     Route: 048
     Dates: start: 20210210
  9. ATEZOLIZUMAB. [Suspect]
     Active Substance: ATEZOLIZUMAB
     Indication: OVARIAN CANCER RECURRENT
     Dosage: ON 15/JAN/2021, MOST RECENT DOSE OF ATEZOLIZUMAB (840 MG) PRIOR TO AE (SEROUS RETINAL DETACHMENT)?ON
     Route: 042
     Dates: start: 20201230
  10. HYDROCORTISONE. [Concomitant]
     Active Substance: HYDROCORTISONE
     Indication: DERMATITIS ACNEIFORM
     Route: 061
     Dates: start: 20210115, end: 20210129

REACTIONS (2)
  - Pancreatitis [Recovered/Resolved]
  - Subretinal fluid [Not Recovered/Not Resolved]

NARRATIVE: CASE EVENT DATE: 20210126
